FAERS Safety Report 8509947-8 (Version None)
Quarter: 2012Q3

REPORT INFORMATION
  Report Type: 
  Country: None (occurrence: None)
  Receive Date: 20120713
  Receipt Date: 20120703
  Transmission Date: 20120928
  Serious: No
  Sender: FDA-Public Use
  Company Number: US-ASTRAZENECA-2012SE17271

PATIENT
  Age: 57 Year
  Sex: Female

DRUGS (3)
  1. PRILOSEC OTC [Suspect]
     Route: 048
  2. PRILOSEC [Suspect]
     Route: 048
  3. NEXIUM [Suspect]
     Route: 048

REACTIONS (6)
  - VOMITING [None]
  - FIBROMYALGIA [None]
  - DRUG DOSE OMISSION [None]
  - PARKINSON'S DISEASE [None]
  - NEUROPATHY PERIPHERAL [None]
  - DYSPEPSIA [None]
